FAERS Safety Report 9324190 (Version 1)
Quarter: 2013Q2

REPORT INFORMATION
  Report Type: Spontaneous
  Country: GB (occurrence: GB)
  Receive Date: 20130603
  Receipt Date: 20130603
  Transmission Date: 20140414
  Serious: Yes (Disabling)
  Sender: FDA-Public Use
  Company Number: GB-NOVOPROD-378478

PATIENT
  Age: 62 Year
  Sex: Female
  Weight: 64.41 kg

DRUGS (7)
  1. VAGIFEM [Suspect]
     Indication: ATROPHIC VULVOVAGINITIS
     Dosage: 10 UG, UNK
     Route: 067
     Dates: start: 20130103, end: 20130420
  2. VAGIFEM [Suspect]
     Indication: HYPERTONIC BLADDER
  3. ASPIRIN [Concomitant]
  4. BENDROFLUMETHIAZIDE [Concomitant]
     Dosage: 2.5 MG, UNK
  5. DIAZEPAM [Concomitant]
     Dosage: 2 MG, UNK
  6. PARACETAMOL [Concomitant]
  7. SENNA                              /00142201/ [Concomitant]
     Dosage: 7.5 MG, UNK

REACTIONS (9)
  - Anxiety [Recovered/Resolved with Sequelae]
  - Contact lens intolerance [Recovered/Resolved with Sequelae]
  - Depression [Recovered/Resolved with Sequelae]
  - Flatulence [Recovered/Resolved with Sequelae]
  - Dyspepsia [Recovered/Resolved with Sequelae]
  - Ocular discomfort [Recovered/Resolved with Sequelae]
  - Visual impairment [Recovered/Resolved with Sequelae]
  - Candida infection [Recovered/Resolved with Sequelae]
  - Abdominal pain [Recovered/Resolved with Sequelae]
